FAERS Safety Report 20018920 (Version 17)
Quarter: 2022Q3

REPORT INFORMATION
  Report Type: Report from Study
  Country: CN (occurrence: None)
  Receive Date: 20211101
  Receipt Date: 20220822
  Transmission Date: 20221027
  Serious: Yes (Hospitalization)
  Sender: FDA-Public Use
  Company Number: CN-ROCHE-2911926

PATIENT
  Age: 61 Year
  Sex: Male
  Weight: 41.5 kg

DRUGS (27)
  1. TIRAGOLUMAB [Suspect]
     Active Substance: TIRAGOLUMAB
     Indication: Oesophageal squamous cell carcinoma metastatic
     Dosage: ON 10/SEP/2021 PATIENT RECEIVED MOST RECENT DOSE OF BLINDED TIRAGOLUMAB
     Route: 042
     Dates: start: 20210910
  2. ATEZOLIZUMAB [Suspect]
     Active Substance: ATEZOLIZUMAB
     Indication: Oesophageal squamous cell carcinoma metastatic
     Dosage: ON 10/SEP/2021 PATIENT HAD MOST RECENT DOSE OF BLINDED ATEZOLIZUMAB.
     Route: 041
     Dates: start: 20210910
  3. PACLITAXEL [Suspect]
     Active Substance: PACLITAXEL
     Indication: Oesophageal squamous cell carcinoma metastatic
     Dosage: ON 10-SEP-2021 PATIENT HAD MOST RECENT DOSE (600 MG) OF PACLITAXEL.
     Route: 042
     Dates: start: 20210910
  4. CISPLATIN [Suspect]
     Active Substance: CISPLATIN
     Indication: Oesophageal squamous cell carcinoma metastatic
     Dosage: ON 10/SEP/2021 PATIENT HAD MOST RECENT DOSE (240 MG) OF CISPLATIN PRIOR TO AE/SAE.
     Route: 042
     Dates: start: 20210910
  5. LENOGRASTIM [Concomitant]
     Active Substance: LENOGRASTIM
     Route: 058
     Dates: start: 20210918, end: 20210924
  6. METHYLPREDNISOLONE SODIUM SUCCINATE [Concomitant]
     Active Substance: METHYLPREDNISOLONE SODIUM SUCCINATE
     Indication: Rash
     Route: 050
     Dates: start: 20210922, end: 20210928
  7. METHYLPREDNISOLONE SODIUM SUCCINATE [Concomitant]
     Active Substance: METHYLPREDNISOLONE SODIUM SUCCINATE
     Route: 058
     Dates: start: 20210929, end: 20211005
  8. METHYLPREDNISOLONE SODIUM SUCCINATE [Concomitant]
     Active Substance: METHYLPREDNISOLONE SODIUM SUCCINATE
     Route: 050
     Dates: start: 20211008, end: 20211008
  9. PREDNISONE ACETATE [Concomitant]
     Active Substance: PREDNISONE ACETATE
     Indication: Rash
     Route: 048
     Dates: start: 20211009, end: 20211014
  10. GLUTATHIONE [Concomitant]
     Active Substance: GLUTATHIONE
     Route: 050
     Dates: start: 20210923, end: 20211008
  11. GLUTATHIONE [Concomitant]
     Active Substance: GLUTATHIONE
     Route: 050
     Dates: start: 20210925, end: 20210928
  12. THROMBOPOIETIN [Concomitant]
     Active Substance: THROMBOPOIETIN
     Indication: Platelet count increased
     Route: 058
     Dates: start: 20210926, end: 20211003
  13. ESTAZOLAM [Concomitant]
     Active Substance: ESTAZOLAM
     Route: 048
     Dates: start: 20210914, end: 20210919
  14. SODIUM CHLORIDE [Concomitant]
     Active Substance: SODIUM CHLORIDE
     Route: 050
     Dates: start: 20210909, end: 20210912
  15. FUROSEMIDE [Concomitant]
     Active Substance: FUROSEMIDE
     Route: 042
     Dates: start: 20210909, end: 20210911
  16. FUROSEMIDE [Concomitant]
     Active Substance: FUROSEMIDE
     Route: 042
     Dates: start: 20210918, end: 20210918
  17. ONDANSETRON HYDROCHLORIDE [Concomitant]
     Active Substance: ONDANSETRON HYDROCHLORIDE
     Indication: Prophylaxis of nausea and vomiting
     Route: 050
     Dates: start: 20210910, end: 20210910
  18. PROMETHAZINE HYDROCHLORIDE [Concomitant]
     Active Substance: PROMETHAZINE HYDROCHLORIDE
     Indication: Sedation
     Route: 030
     Dates: start: 20210910, end: 20210910
  19. PROMETHAZINE HYDROCHLORIDE [Concomitant]
     Active Substance: PROMETHAZINE HYDROCHLORIDE
     Indication: Drug hypersensitivity
     Route: 030
     Dates: start: 20210924, end: 20210924
  20. CIMETIDINE [Concomitant]
     Active Substance: CIMETIDINE
     Indication: Prophylaxis
     Route: 050
     Dates: start: 20210910, end: 20210910
  21. OMEPRAZOLE SODIUM [Concomitant]
     Active Substance: OMEPRAZOLE SODIUM
     Indication: Prophylaxis
     Route: 042
     Dates: start: 20210910, end: 20210910
  22. DEXAMETHASONE SODIUM PHOSPHATE [Concomitant]
     Active Substance: DEXAMETHASONE SODIUM PHOSPHATE
     Indication: Rash
     Route: 042
     Dates: start: 20210910, end: 20210910
  23. DEXAMETHASONE SODIUM PHOSPHATE [Concomitant]
     Active Substance: DEXAMETHASONE SODIUM PHOSPHATE
     Indication: Drug hypersensitivity
     Route: 042
     Dates: start: 20210920, end: 20210920
  24. DEXAMETHASONE SODIUM PHOSPHATE [Concomitant]
     Active Substance: DEXAMETHASONE SODIUM PHOSPHATE
     Route: 042
     Dates: start: 20210921, end: 20210921
  25. COMPOUND GLYCYRRHIZA [Concomitant]
     Indication: Cough
     Route: 048
     Dates: start: 20210921, end: 20210926
  26. RECOMBINANT HUMAN GRANULOCYTE COLONY STIMULATING FACTOR (UNK INGREDIEN [Concomitant]
     Route: 058
     Dates: start: 20210918, end: 20210921
  27. RECOMBINANT HUMAN GRANULOCYTE COLONY STIMULATING FACTOR (UNK INGREDIEN [Concomitant]
     Route: 058
     Dates: start: 20210922, end: 20210924

REACTIONS (1)
  - Electrolyte imbalance [Recovered/Resolved with Sequelae]

NARRATIVE: CASE EVENT DATE: 20210913
